FAERS Safety Report 21519947 (Version 4)
Quarter: 2022Q4

REPORT INFORMATION
  Report Type: Report from Study
  Country: US (occurrence: US)
  Receive Date: 20221028
  Receipt Date: 20221122
  Transmission Date: 20230113
  Serious: Yes (Hospitalization)
  Sender: FDA-Public Use
  Company Number: US-ABBVIE-22K-163-4476326-00

PATIENT
  Age: 61 Year
  Sex: Male
  Weight: 104.32 kg

DRUGS (14)
  1. HUMIRA [Suspect]
     Active Substance: ADALIMUMAB
     Indication: Rheumatoid arthritis
     Route: 058
  2. HUMIRA [Suspect]
     Active Substance: ADALIMUMAB
     Route: 058
  3. HUMIRA [Suspect]
     Active Substance: ADALIMUMAB
     Route: 058
  4. atenolol Pill [Concomitant]
     Indication: Hypertension
     Route: 048
  5. MODERNA COVID-19 VACCINE [Concomitant]
     Active Substance: ELASOMERAN
     Indication: COVID-19 immunisation
     Dosage: TIME INTERVAL: 1 TOTAL: FIRST DOSE
     Route: 030
  6. MODERNA COVID-19 VACCINE [Concomitant]
     Active Substance: ELASOMERAN
     Indication: COVID-19 immunisation
     Dosage: TIME INTERVAL: 1 TOTAL: BOOSTER DOSE
     Route: 030
  7. POTASSIUM CITRATE [Concomitant]
     Active Substance: POTASSIUM CITRATE
     Indication: Nephrolithiasis
     Route: 048
  8. VITAMIN D [Concomitant]
     Active Substance: VITAMIN D NOS
     Indication: Product used for unknown indication
     Route: 048
  9. FISH OIL [Concomitant]
     Active Substance: FISH OIL
     Indication: Product used for unknown indication
     Route: 048
  10. hydroxychloroquine pill [Concomitant]
     Indication: Rheumatoid arthritis
     Route: 048
  11. atorvastatin pill [Concomitant]
     Indication: Blood cholesterol
     Dosage: 40 MILLIGRAM
     Route: 048
  12. levothyroxine pill [Concomitant]
     Indication: Hypothyroidism
     Dosage: 175 MILLIGRAM
     Route: 048
  13. ASPIRIN [Concomitant]
     Active Substance: ASPIRIN
     Indication: Product used for unknown indication
     Dosage: 87 MILLIGRAM
     Route: 048
  14. Chlorthalidone Pill [Concomitant]
     Indication: Nephrolithiasis
     Dosage: 25 MILLIGRAM
     Route: 048

REACTIONS (3)
  - Pasteurella infection [Recovered/Resolved]
  - Dehydration [Unknown]
  - Pasteurella infection [Recovered/Resolved]

NARRATIVE: CASE EVENT DATE: 20220325
